FAERS Safety Report 6665307-6 (Version None)
Quarter: 2010Q1

REPORT INFORMATION
  Report Type: 
  Country: None (occurrence: None)
  Receive Date: 20100323
  Receipt Date: 20100114
  Transmission Date: 20100710
  Serious: No
  Sender: FDA-Public Use
  Company Number: 100114-0000046

PATIENT
  Age: 28 Month
  Sex: Male
  Weight: 8.6183 kg

DRUGS (6)
  1. SABRIL [Suspect]
     Indication: INFANTILE SPASMS
     Dosage: 500 MG; BID; PO; 1000 MG; QD;PO  500 MG; QD; PO
     Dates: start: 20080201, end: 20091130
  2. SABRIL [Suspect]
     Indication: INFANTILE SPASMS
     Dosage: 500 MG; BID; PO; 1000 MG; QD;PO  500 MG; QD; PO
     Dates: start: 20091201, end: 20100113
  3. SABRIL [Suspect]
     Indication: INFANTILE SPASMS
     Dosage: 500 MG; BID; PO; 1000 MG; QD;PO  500 MG; QD; PO
     Dates: start: 20100113
  4. KEPPRA [Concomitant]
  5. PRIMIDONE [Concomitant]
  6. CHLORAL HYDRATE [Concomitant]

REACTIONS (1)
  - INSOMNIA [None]
